FAERS Safety Report 5823743-1 (Version None)
Quarter: 2008Q3

REPORT INFORMATION
  Report Type: 
  Country: None (occurrence: None)
  Receive Date: 20080725
  Receipt Date: 20080714
  Transmission Date: 20090109
  Serious: Yes (Other)
  Sender: FDA-Public Use
  Company Number: JP-PFIZER INC-2008058575

PATIENT
  Sex: Female

DRUGS (1)
  1. CELECOX [Suspect]
     Dosage: DAILY DOSE:200MG
     Route: 048

REACTIONS (1)
  - DEMENTIA [None]
